FAERS Safety Report 7715090-8 (Version None)
Quarter: 2011Q3

REPORT INFORMATION
  Report Type: 
  Country: None (occurrence: None)
  Receive Date: 20110829
  Receipt Date: 20110816
  Transmission Date: 20111222
  Serious: Yes (Other)
  Sender: FDA-Public Use
  Company Number: PHHY2011BR06477

PATIENT
  Sex: Female
  Weight: 75 kg

DRUGS (5)
  1. DESELEX [Concomitant]
     Indication: ASTHMA
     Dosage: ONE TABLET DAILY
     Route: 048
     Dates: start: 20110109
  2. DESELEX [Concomitant]
     Indication: BRONCHITIS
  3. FORMOTEROL FUMARATE [Suspect]
     Indication: ASTHMA
     Dosage: UNK
     Dates: start: 20110109
  4. BUDESONIDE [Concomitant]
     Indication: BRONCHITIS
  5. BUDESONIDE [Concomitant]
     Indication: ASTHMA
     Dosage: ONE DOSE IN EACH NOSTRIL DAILY
     Dates: start: 20110109

REACTIONS (3)
  - MATERNAL EXPOSURE DURING PREGNANCY [None]
  - AMNIOTIC FLUID VOLUME DECREASED [None]
  - NORMAL NEWBORN [None]
